FAERS Safety Report 8559600-X (Version None)
Quarter: 2012Q3

REPORT INFORMATION
  Report Type: 
  Country: None (occurrence: None)
  Receive Date: 20120802
  Receipt Date: 20120725
  Transmission Date: 20120928
  Serious: Yes (Other)
  Sender: FDA-Public Use
  Company Number: US-MYLANLABS-2012S1011167

PATIENT
  Age: 20 Year
  Sex: Female

DRUGS (4)
  1. ORAL CONTRACEPTIVE NOS [Concomitant]
  2. AMNESTEEM [Suspect]
     Route: 048
     Dates: end: 20120501
  3. EMERGENCY CONTRACEPTIVES [Concomitant]
  4. AMNESTEEM [Suspect]
     Route: 048
     Dates: start: 20111004, end: 20120101

REACTIONS (2)
  - MATERNAL EXPOSURE DURING PREGNANCY [None]
  - ABORTION SPONTANEOUS [None]
